FAERS Safety Report 4579356-5 (Version None)
Quarter: 2005Q1

REPORT INFORMATION
  Report Type: 
  Country: None (occurrence: None)
  Receive Date: 20050209
  Receipt Date: 20050128
  Transmission Date: 20050727
  Serious: Yes (Life-Threatening, Hospitalization)
  Sender: FDA-Public Use
  Company Number: 235368K04USA

PATIENT
  Age: 45 Year
  Sex: Female
  Weight: 66.9 kg

DRUGS (5)
  1. REBIF [Suspect]
     Indication: MULTIPLE SCLEROSIS
     Dosage: 44, 3 IN 1 WEEKS, SUBCUTANEOUS
     Route: 058
     Dates: start: 20040422, end: 20040901
  2. NEURONTIN [Concomitant]
  3. BACLOFEN [Concomitant]
  4. LO/OVRAL (EUGYNON) [Concomitant]
  5. LIPITOR [Concomitant]

REACTIONS (4)
  - GLOMERULONEPHRITIS MINIMAL LESION [None]
  - INJECTION SITE IRRITATION [None]
  - NEPHRITIS INTERSTITIAL [None]
  - RENAL FAILURE ACUTE [None]
